FAERS Safety Report 24841087 (Version 1)
Quarter: 2025Q1

REPORT INFORMATION
  Report Type: Report from Study
  Country: US (occurrence: US)
  Receive Date: 20250114
  Receipt Date: 20250114
  Transmission Date: 20250409
  Serious: Yes (Other)
  Sender: ALEXION PHARMACEUTICALS
  Company Number: US-AstraZeneca-CH-00755273A

PATIENT
  Age: 71 Year

DRUGS (24)
  1. TICAGRELOR [Suspect]
     Active Substance: TICAGRELOR
     Route: 065
  2. TICAGRELOR [Suspect]
     Active Substance: TICAGRELOR
     Route: 065
  3. TICAGRELOR [Suspect]
     Active Substance: TICAGRELOR
     Route: 065
  4. TICAGRELOR [Suspect]
     Active Substance: TICAGRELOR
     Route: 065
  5. ARIMIDEX [Concomitant]
     Active Substance: ANASTROZOLE
  6. VITAMIN C [Concomitant]
     Active Substance: ASCORBIC ACID
  7. ASPIRIN [Concomitant]
     Active Substance: ASPIRIN
  8. LIPITOR [Concomitant]
     Active Substance: ATORVASTATIN CALCIUM
  9. VITAMIN D3 [Concomitant]
     Active Substance: CHOLECALCIFEROL
  10. PLAVIX [Concomitant]
     Active Substance: CLOPIDOGREL BISULFATE
  11. FLONASE [Concomitant]
     Active Substance: FLUTICASONE PROPIONATE
  12. ACIDOPHILUS [Concomitant]
     Active Substance: LACTOBACILLUS ACIDOPHILUS
  13. MAGNESIUM [Concomitant]
     Active Substance: MAGNESIUM
  14. METFORMIN [Concomitant]
     Active Substance: METFORMIN HYDROCHLORIDE
  15. METHOCARBAMOL [Concomitant]
     Active Substance: METHOCARBAMOL
  16. MONTELUKAST [Concomitant]
     Active Substance: MONTELUKAST
  17. OMEPRAZOLE [Concomitant]
     Active Substance: OMEPRAZOLE
  18. REQUIP [Concomitant]
     Active Substance: ROPINIROLE HYDROCHLORIDE
  19. VITAMINS [Concomitant]
     Active Substance: VITAMINS
  20. ZANAFLEX [Concomitant]
     Active Substance: TIZANIDINE HYDROCHLORIDE
  21. ULTRACET [Concomitant]
     Active Substance: ACETAMINOPHEN\TRAMADOL HYDROCHLORIDE
  22. TOPROL XL [Concomitant]
     Active Substance: METOPROLOL SUCCINATE
  23. NITROSTAT [Concomitant]
     Active Substance: NITROGLYCERIN
  24. ALDACTONE [Concomitant]
     Active Substance: SPIRONOLACTONE

REACTIONS (6)
  - Myocardial infarction [Unknown]
  - Chest pain [Unknown]
  - Back pain [Unknown]
  - Nausea [Unknown]
  - Dyspnoea [Unknown]
  - Headache [Unknown]
